FAERS Safety Report 14222469 (Version 1)
Quarter: 2017Q4

REPORT INFORMATION
  Report Type: Spontaneous
  Country: US (occurrence: US)
  Receive Date: 20171124
  Receipt Date: 20171124
  Transmission Date: 20180321
  Serious: No
  Sender: FDA-Public Use
  Company Number: US-BRISTOL-MYERS SQUIBB COMPANY-BMS-2017-050454

PATIENT

DRUGS (2)
  1. ABILIFY [Suspect]
     Active Substance: ARIPIPRAZOLE
     Indication: BIPOLAR DISORDER
     Route: 048
  2. ABILIFY [Suspect]
     Active Substance: ARIPIPRAZOLE
     Indication: DEPRESSION
     Route: 065

REACTIONS (8)
  - Obsessive-compulsive disorder [Unknown]
  - Hypersexuality [Unknown]
  - Injury [Unknown]
  - Impulsive behaviour [Unknown]
  - Emotional distress [Unknown]
  - Gambling [Unknown]
  - Pain [Unknown]
  - Condition aggravated [Unknown]
